FAERS Safety Report 25301797 (Version 1)
Quarter: 2025Q2

REPORT INFORMATION
  Report Type: Spontaneous
  Country: US (occurrence: None)
  Receive Date: 20250511
  Receipt Date: 20250511
  Transmission Date: 20250717
  Serious: No
  Sender: FDA-CTU
  Company Number: None

PATIENT
  Sex: Female
  Weight: 75.6 kg

DRUGS (9)
  1. ZAVZPRET [Suspect]
     Active Substance: ZAVEGEPANT HYDROCHLORIDE
     Indication: Migraine
     Dosage: 1 SPRAY DAILY RESPIRATORY (INHALATION)
     Route: 055
     Dates: start: 20250511
  2. DULOXETINE [Concomitant]
     Active Substance: DULOXETINE
  3. LAMICTAL [Concomitant]
     Active Substance: LAMOTRIGINE
  4. TRAZODONE [Concomitant]
     Active Substance: TRAZODONE HYDROCHLORIDE
  5. AMITRIPTYLINE [Concomitant]
     Active Substance: AMITRIPTYLINE
  6. KETOROLAC [Concomitant]
     Active Substance: KETOROLAC TROMETHAMINE
  7. PHENEGRAN [Concomitant]
  8. MUNJARO [Concomitant]
  9. MAGNESIUM [Concomitant]
     Active Substance: MAGNESIUM

REACTIONS (2)
  - Throat irritation [None]
  - Toothache [None]
